FAERS Safety Report 4342249-2 (Version None)
Quarter: 2004Q2

REPORT INFORMATION
  Report Type: 
  Country: None (occurrence: None)
  Receive Date: 20040415
  Receipt Date: 20040331
  Transmission Date: 20050107
  Serious: Yes (Death)
  Sender: FDA-Public Use
  Company Number: 188266

PATIENT
  Age: 73 Year
  Sex: Female

DRUGS (10)
  1. AVONEX [Suspect]
     Indication: MULTIPLE SCLEROSIS
     Dates: end: 20030101
  2. PROVIGIL [Concomitant]
  3. UNIVASC [Concomitant]
  4. BENICAR [Concomitant]
  5. K-TAB [Concomitant]
  6. LABETALOL HCL [Concomitant]
  7. ZOLOFT [Concomitant]
  8. CALCIUM WITH VITAMIN D [Concomitant]
  9. FIBERCON [Concomitant]
  10. MEDROL [Concomitant]

REACTIONS (5)
  - ACUTE MYOCARDIAL INFARCTION [None]
  - CONDITION AGGRAVATED [None]
  - CORONARY ARTERY DISEASE [None]
  - MULTIPLE SCLEROSIS [None]
  - SUDDEN DEATH [None]
